FAERS Safety Report 25969195 (Version 1)
Quarter: 2025Q4

REPORT INFORMATION
  Report Type: Spontaneous
  Country: EU (occurrence: None)
  Receive Date: 20251028
  Receipt Date: 20251028
  Transmission Date: 20260118
  Serious: Yes (Other)
  Sender: UCB
  Company Number: None

PATIENT
  Age: 40 Year
  Weight: 56 kg

DRUGS (2)
  1. CERTOLIZUMAB PEGOL [Suspect]
     Active Substance: CERTOLIZUMAB PEGOL
     Indication: Axial spondyloarthritis
     Dosage: 1 DOSAGE FORM, EV 3 WEEKS
  2. SALAZOPYRINE [Suspect]
     Active Substance: SULFASALAZINE
     Indication: Peripheral spondyloarthritis
     Dosage: 1000 MILLIGRAM, 2X/DAY (BID)

REACTIONS (3)
  - Pneumonia [Recovered/Resolved]
  - Stomatitis [Recovering/Resolving]
  - Gastrointestinal bacterial infection [Not Recovered/Not Resolved]
